FAERS Safety Report 10488047 (Version 1)
Quarter: 2014Q4

REPORT INFORMATION
  Report Type: Spontaneous
  Country: IT (occurrence: IT)
  Receive Date: 20141001
  Receipt Date: 20141001
  Transmission Date: 20150528
  Serious: Yes (Hospitalization)
  Sender: FDA-Public Use
  Company Number: PHHY2014IT126988

PATIENT
  Age: 90 Year
  Sex: Female

DRUGS (5)
  1. DELTACORTENE [Concomitant]
     Active Substance: PREDNISONE
  2. CIPROFLOX [Suspect]
     Active Substance: CIPROFLOXACIN HYDROCHLORIDE
     Indication: PYREXIA
     Dosage: 1 G, QD
     Route: 048
     Dates: start: 20140912, end: 20140917
  3. RAMIPRIL. [Concomitant]
     Active Substance: RAMIPRIL
  4. AMOXICILLIN. [Suspect]
     Active Substance: AMOXICILLIN
     Indication: PYREXIA
     Dosage: 3 G, QD
     Route: 048
     Dates: start: 20140918, end: 20140922
  5. CACIT VITAMINA D3 [Concomitant]

REACTIONS (2)
  - Drug ineffective [Recovering/Resolving]
  - Pneumonia [Recovering/Resolving]

NARRATIVE: CASE EVENT DATE: 20140922
